FAERS Safety Report 10060550 (Version 1)
Quarter: 2014Q2

REPORT INFORMATION
  Report Type: Spontaneous
  Country: US (occurrence: US)
  Receive Date: 20140404
  Receipt Date: 20140404
  Transmission Date: 20141212
  Serious: Yes (Hospitalization, Other)
  Sender: FDA-Public Use
  Company Number: US-BAYER-2014-047705

PATIENT
  Age: 74 Year
  Sex: Male
  Weight: 88 kg

DRUGS (17)
  1. BAYER ASPIRIN REGIMEN ADULT LOW STRENGTH [Suspect]
     Indication: CARDIOVASCULAR EVENT PROPHYLAXIS
     Dosage: 81 MG, QD
     Route: 048
     Dates: start: 20070925, end: 20130417
  2. BAYER ASPIRIN REGIMEN ADULT LOW STRENGTH [Suspect]
     Indication: CARDIOVASCULAR EVENT PROPHYLAXIS
     Dosage: UNK
     Route: 048
     Dates: start: 20130510
  3. LISINOPRIL [Concomitant]
     Indication: HYPERTENSION
     Dosage: 40 MG, BID
     Route: 048
     Dates: start: 2009
  4. SIMVASTATIN [Concomitant]
     Indication: DYSLIPIDAEMIA
     Dosage: 20 MG, QD
     Route: 048
     Dates: start: 2009
  5. VITAMIN D [Concomitant]
     Indication: PROPHYLAXIS
     Dosage: 2000 IU, QD
     Route: 048
     Dates: start: 2003
  6. FERROUS SULFATE [Concomitant]
     Indication: ANAEMIA
     Dosage: 86 MG, QD
     Route: 048
     Dates: start: 2003
  7. FERROUS SULFATE [Concomitant]
     Indication: ANAEMIA
     Dosage: UNK
     Dates: start: 20130510
  8. VITAMIN C [Concomitant]
     Indication: SUPPLEMENTATION THERAPY
     Dosage: 1000 MG, QD
     Route: 048
     Dates: start: 2003
  9. VITAMIN C [Concomitant]
     Indication: SUPPLEMENTATION THERAPY
     Dosage: UNK
     Dates: start: 20130510
  10. GLUCOSAMINE [Concomitant]
     Indication: PROPHYLAXIS
     Dosage: 1500 MG, QD
     Route: 048
     Dates: start: 2003
  11. CHONDROITIN [Concomitant]
     Indication: PROPHYLAXIS
     Dosage: 1200 MG, QD
     Route: 048
     Dates: start: 2003
  12. FISH OIL [Concomitant]
     Indication: PROPHYLAXIS
     Dosage: 1000 MG, BID
     Route: 048
     Dates: start: 2003
  13. ZINC [Concomitant]
     Indication: PROPHYLAXIS
     Dosage: 1 DF, QD
     Route: 048
     Dates: start: 2003
  14. MELATONIN [Concomitant]
     Indication: SLEEP DISORDER THERAPY
     Dosage: 9 MG, QD
     Route: 048
     Dates: start: 2012
  15. DOXAZOSIN [Concomitant]
     Indication: BENIGN PROSTATIC HYPERPLASIA
     Dosage: UNK UNK, Q4HR
     Route: 048
     Dates: start: 20120207
  16. NEXIUM [Concomitant]
     Indication: PROPHYLAXIS
     Dosage: 20 MG, ONCE
     Route: 048
     Dates: start: 20130410
  17. MIRALAX [Concomitant]
     Indication: PROPHYLAXIS
     Dosage: 17 G, QD
     Route: 048
     Dates: start: 2003

REACTIONS (11)
  - Blood urine present [Recovered/Resolved]
  - Haemorrhage urinary tract [Recovered/Resolved]
  - Post procedural haemorrhage [Recovered/Resolved]
  - Urinary retention [None]
  - Procedural pain [None]
  - Red blood cell count decreased [None]
  - Discomfort [None]
  - Micturition urgency [None]
  - Urinary incontinence [None]
  - Bladder outlet obstruction [None]
  - Off label use [None]
